FAERS Safety Report 7363263-9 (Version None)
Quarter: 2011Q1

REPORT INFORMATION
  Report Type: 
  Country: None (occurrence: None)
  Receive Date: 20110321
  Receipt Date: 20110308
  Transmission Date: 20110831
  Serious: Yes (Hospitalization)
  Sender: FDA-Public Use
  Company Number: US-JNJFOC-20100102349

PATIENT
  Sex: Female
  Weight: 48.1 kg

DRUGS (7)
  1. INFLIXIMAB [Suspect]
     Route: 042
  2. MESALAMINE [Concomitant]
  3. INFLIXIMAB [Suspect]
     Indication: CROHN'S DISEASE
     Route: 042
  4. INFLIXIMAB [Suspect]
     Indication: ANORECTAL DISORDER
     Route: 042
  5. METRONIDAZOLE [Concomitant]
  6. INFLIXIMAB [Suspect]
     Route: 042
  7. CIPRO [Concomitant]

REACTIONS (1)
  - PERIRECTAL ABSCESS [None]
